FAERS Safety Report 12926576 (Version 4)
Quarter: 2018Q2

REPORT INFORMATION
  Report Type: Spontaneous
  Country: GB (occurrence: GB)
  Receive Date: 20161109
  Receipt Date: 20180525
  Transmission Date: 20180711
  Serious: Yes (Congenital Anomaly, Other)
  Sender: FDA-Public Use
  Company Number: GB-ALLERGAN-1675085US

PATIENT
  Sex: Female

DRUGS (5)
  1. CITALOPRAM HYDROBROMIDE - BP [Suspect]
     Active Substance: CITALOPRAM HYDROBROMIDE
     Indication: MATERNAL EXPOSURE TIMING UNSPECIFIED
     Dosage: UNK, QD
     Route: 064
  2. ARIPIPRAZOLE. [Suspect]
     Active Substance: ARIPIPRAZOLE
     Indication: MATERNAL EXPOSURE TIMING UNSPECIFIED
     Dosage: UNK, QD
     Route: 064
  3. OLANZAPINE. [Suspect]
     Active Substance: OLANZAPINE
     Indication: MATERNAL EXPOSURE TIMING UNSPECIFIED
     Dosage: UNK, QD
     Route: 064
  4. SIMVASTATIN. [Suspect]
     Active Substance: SIMVASTATIN
     Indication: MATERNAL EXPOSURE TIMING UNSPECIFIED
     Route: 064
  5. INSULIN [Suspect]
     Active Substance: INSULIN NOS
     Indication: MATERNAL EXPOSURE TIMING UNSPECIFIED
     Route: 064

REACTIONS (6)
  - Retinal coloboma [Unknown]
  - Visual impairment [Unknown]
  - Iris coloboma [Unknown]
  - Microphthalmos [Unknown]
  - Foetal exposure during pregnancy [Unknown]
  - Scleroderma [Unknown]
